FAERS Safety Report 5584265-9 (Version None)
Quarter: 2008Q1

REPORT INFORMATION
  Report Type: 
  Country: None (occurrence: None)
  Receive Date: 20080108
  Receipt Date: 20071228
  Transmission Date: 20080703
  Serious: Yes (Hospitalization)
  Sender: FDA-Public Use
  Company Number: B0439517A

PATIENT
  Age: 15 Year
  Sex: Female

DRUGS (14)
  1. FLOLAN [Suspect]
     Indication: PULMONARY HYPERTENSION
     Route: 042
     Dates: start: 20060201
  2. WARFARIN POTASSIUM [Concomitant]
     Route: 048
  3. FUROSEMIDE [Concomitant]
     Route: 048
  4. SPIRONOLACTONE [Concomitant]
     Route: 048
  5. DIGOXIN [Concomitant]
     Route: 048
  6. SALOBEL [Concomitant]
     Route: 048
  7. ENALAPRIL MALEATE [Concomitant]
     Route: 048
  8. VIAGRA [Concomitant]
     Route: 048
  9. MYSLEE [Concomitant]
     Route: 048
  10. GOODMIN [Concomitant]
     Route: 048
  11. TRACLEER [Concomitant]
     Route: 048
  12. ASPARA K [Concomitant]
     Route: 048
     Dates: start: 20070313, end: 20070613
  13. INDERAL [Concomitant]
     Route: 048
  14. THYRADIN [Concomitant]
     Route: 048

REACTIONS (4)
  - ANAEMIA [None]
  - CARDIAC FAILURE [None]
  - PALLOR [None]
  - THYROID DISORDER [None]
